FAERS Safety Report 21847106 (Version 1)
Quarter: 2023Q1

REPORT INFORMATION
  Report Type: Spontaneous
  Country: US (occurrence: US)
  Receive Date: 20230111
  Receipt Date: 20230111
  Transmission Date: 20230418
  Serious: Yes (Hospitalization, Other)
  Sender: FDA-Public Use
  Company Number: US-LUPIN PHARMACEUTICALS INC.-2023-00037

PATIENT

DRUGS (3)
  1. ALBUTEROL SULFATE [Suspect]
     Active Substance: ALBUTEROL SULFATE
     Indication: Chronic obstructive pulmonary disease
     Dosage: 2 DOSAGE FORM, EVERY 6 HOURS
     Dates: start: 20221216
  2. ALBUTEROL SULFATE [Suspect]
     Active Substance: ALBUTEROL SULFATE
     Dosage: 2 DOSAGE FORM, EVERY 6 HOURS
     Dates: start: 20221216
  3. ALBUTEROL SULFATE [Suspect]
     Active Substance: ALBUTEROL SULFATE
     Dosage: 2 DOSAGE FORM, EVERY 6 HOURS
     Dates: start: 20221216

REACTIONS (3)
  - Panic attack [Unknown]
  - Drug dose omission by device [Unknown]
  - Device delivery system issue [Unknown]
